FAERS Safety Report 18946147 (Version 1)
Quarter: 2021Q1

REPORT INFORMATION
  Report Type: Spontaneous
  Country: FR (occurrence: FR)
  Receive Date: 20210226
  Receipt Date: 20210226
  Transmission Date: 20210420
  Serious: Yes (Hospitalization)
  Sender: FDA-Public Use
  Company Number: FR-TEVA-2021-FR-1883429

PATIENT
  Age: 77 Year
  Sex: Male
  Weight: 76.2 kg

DRUGS (5)
  1. CEFOTAXIME [Suspect]
     Active Substance: CEFOTAXIME SODIUM
     Indication: COVID-19 PNEUMONIA
     Dosage: 3 GRAM
     Route: 042
     Dates: start: 20210122, end: 20210124
  2. AMOXICILLINE [Suspect]
     Active Substance: AMOXICILLIN
     Indication: COVID-19
     Dosage: 2 GRAM
     Route: 048
     Dates: start: 20210118, end: 20210122
  3. DEXAMETHASONE. [Concomitant]
     Active Substance: DEXAMETHASONE
  4. SERECOR [Concomitant]
  5. LOVENOX [Concomitant]
     Active Substance: ENOXAPARIN SODIUM

REACTIONS (1)
  - Hepatocellular injury [Recovering/Resolving]

NARRATIVE: CASE EVENT DATE: 20210124
